FAERS Safety Report 5524568-7 (Version None)
Quarter: 2007Q4

REPORT INFORMATION
  Report Type: 
  Country: None (occurrence: None)
  Receive Date: 20071123
  Receipt Date: 20071114
  Transmission Date: 20080405
  Serious: Yes (Hospitalization)
  Sender: FDA-Public Use
  Company Number: BR-JNJFOC-20071105751

PATIENT
  Age: 67 Year
  Sex: Female
  Weight: 55 kg

DRUGS (3)
  1. ACETAMINOPHEN W/ CODEINE [Suspect]
     Indication: PAIN
     Dosage: 500MG/30MG
     Route: 065
  2. RADIOTHERAPY [Concomitant]
     Indication: NEOPLASM MALIGNANT
     Route: 065
  3. LORAZEPAM [Concomitant]
     Indication: SEDATIVE THERAPY
     Route: 065

REACTIONS (4)
  - ANXIETY [None]
  - DEPRESSION [None]
  - DYSPNOEA [None]
  - NAUSEA [None]
